FAERS Safety Report 5628210-6 (Version None)
Quarter: 2008Q1

REPORT INFORMATION
  Report Type: 
  Country: None (occurrence: None)
  Receive Date: 20080215
  Receipt Date: 20080204
  Transmission Date: 20080703
  Serious: Yes (Other)
  Sender: FDA-Public Use
  Company Number: JP-PFIZER INC-2008011801

PATIENT
  Age: 87 Year
  Sex: Male

DRUGS (6)
  1. GABAPEN [Suspect]
     Indication: PAIN
     Dosage: DAILY DOSE:200MG
     Route: 048
  2. OXYCODONE HYDROCHLORIDE [Concomitant]
     Route: 048
  3. RISPERIDONE [Concomitant]
     Route: 048
  4. ALL OTHER THERAPEUTIC PRODUCTS [Concomitant]
  5. ANTIINFLAMMATORY/ANTIRHEUMATIC NON-STEROIDS [Concomitant]
  6. FLUOROURACIL [Concomitant]

REACTIONS (2)
  - LETHARGY [None]
  - SNORING [None]
